FAERS Safety Report 21249935 (Version 3)
Quarter: 2022Q3

REPORT INFORMATION
  Report Type: Report from Study
  Country: US (occurrence: US)
  Receive Date: 20220824
  Receipt Date: 20220916
  Transmission Date: 20221026
  Serious: Yes (Other)
  Sender: FDA-Public Use
  Company Number: US-BRISTOL-MYERS SQUIBB COMPANY-2022-084092

PATIENT
  Age: 81 Year
  Sex: Female
  Weight: 67.8 kg

DRUGS (14)
  1. FUROSEMIDE [Concomitant]
     Active Substance: FUROSEMIDE
     Indication: Hypertrophic cardiomyopathy
     Dosage: AS NECESSARY
     Route: 048
     Dates: start: 20220719
  2. FUROSEMIDE [Concomitant]
     Active Substance: FUROSEMIDE
     Indication: Cardiac failure
     Dosage: ONCE
     Route: 042
     Dates: start: 20220719, end: 20220720
  3. FARXIGA [Concomitant]
     Active Substance: DAPAGLIFLOZIN PROPANEDIOL
     Indication: Diabetes mellitus
     Route: 048
     Dates: start: 20220716
  4. SPIRONOLACTONE [Concomitant]
     Active Substance: SPIRONOLACTONE
     Indication: Hypertrophic cardiomyopathy
     Route: 048
     Dates: start: 20220530
  5. PROLIA [Concomitant]
     Active Substance: DENOSUMAB
     Indication: Osteoporosis
     Route: 058
     Dates: start: 20210602
  6. PANTOPRAZOLE [Concomitant]
     Active Substance: PANTOPRAZOLE
     Indication: Gastrooesophageal reflux disease
     Route: 048
     Dates: start: 20201207
  7. RESTASIS [Concomitant]
     Active Substance: CYCLOSPORINE
     Indication: Dry eye
     Route: 031
     Dates: start: 20190926
  8. ALLOPURINOL [Concomitant]
     Active Substance: ALLOPURINOL
     Indication: Gout
     Route: 048
     Dates: start: 20080620
  9. DILTIAZEM [Concomitant]
     Active Substance: DILTIAZEM
     Indication: Hypertension
     Route: 048
     Dates: start: 1997
  10. ROSUVASTATIN [Concomitant]
     Active Substance: ROSUVASTATIN
     Indication: Dyslipidaemia
     Route: 048
     Dates: start: 1997
  11. ALEVE [Concomitant]
     Active Substance: NAPROXEN SODIUM
     Indication: Osteoarthritis
     Dosage: AS NECESSARY
     Route: 048
     Dates: start: 1996
  12. LEVOTHYROXINE [Concomitant]
     Active Substance: LEVOTHYROXINE
     Indication: Hypothyroidism
     Route: 048
     Dates: start: 1955
  13. VITAMINS NOS [Concomitant]
     Active Substance: VITAMINS
     Indication: Supplementation therapy
     Dosage: 1DF=1 CAPSULE
     Route: 048
     Dates: start: 1995
  14. VITAMIN D3 [Concomitant]
     Active Substance: CHOLECALCIFEROL
     Indication: Supplementation therapy
     Dosage: 1DF=1000 UNIT
     Route: 048
     Dates: start: 1995

REACTIONS (2)
  - Ejection fraction decreased [Recovered/Resolved]
  - Cardiac ventricular thrombosis [Recovered/Resolved]

NARRATIVE: CASE EVENT DATE: 20220728
